FAERS Safety Report 18683965 (Version 1)
Quarter: 2020Q4

REPORT INFORMATION
  Report Type: Report from Study
  Country: CA (occurrence: CA)
  Receive Date: 20201230
  Receipt Date: 20201230
  Transmission Date: 20210114
  Serious: Yes (Hospitalization, Other)
  Sender: FDA-Public Use
  Company Number: PHHY2014CA005753

PATIENT
  Age: 10 Year
  Sex: Female

DRUGS (4)
  1. ILARIS [Suspect]
     Active Substance: CANAKINUMAB
     Indication: JUVENILE IDIOPATHIC ARTHRITIS
     Dosage: 300 MG, Q4W
     Route: 058
     Dates: start: 20131028
  2. ILARIS [Suspect]
     Active Substance: CANAKINUMAB
     Dosage: UNK
     Route: 058
     Dates: start: 201701
  3. ILARIS [Suspect]
     Active Substance: CANAKINUMAB
     Dosage: 150 MG, Q4W
     Route: 058
  4. ILARIS [Suspect]
     Active Substance: CANAKINUMAB
     Dosage: UNK
     Route: 058
     Dates: start: 20170121

REACTIONS (15)
  - Skin infection [Unknown]
  - Infection [Unknown]
  - Juvenile idiopathic arthritis [Unknown]
  - Rash [Unknown]
  - Inflammation [Unknown]
  - Arthralgia [Unknown]
  - Malaise [Unknown]
  - Pneumonia [Unknown]
  - Red blood cell sedimentation rate increased [Recovered/Resolved]
  - Myalgia [Unknown]
  - Sinusitis [Unknown]
  - Joint swelling [Unknown]
  - Joint effusion [Unknown]
  - Fatigue [Unknown]
  - Pyrexia [Unknown]

NARRATIVE: CASE EVENT DATE: 20140111
